FAERS Safety Report 8539622-5 (Version None)
Quarter: 2012Q3

REPORT INFORMATION
  Report Type: 
  Country: None (occurrence: None)
  Receive Date: 20120726
  Receipt Date: 20120717
  Transmission Date: 20120928
  Serious: Yes (Other)
  Sender: FDA-Public Use
  Company Number: JP-SANOFI-AVENTIS-2012SA052673

PATIENT
  Sex: Female

DRUGS (12)
  1. LANSOPRAZOLE [Concomitant]
  2. SULFAMETHOXAZOLE AND TRIMETHOPRIM [Concomitant]
     Route: 048
  3. PREDNISOLONE [Concomitant]
  4. ZOLPIDEM [Suspect]
     Route: 048
  5. MAGLAX [Concomitant]
     Route: 048
  6. ATORVASTATIN CALCIUM [Suspect]
     Route: 048
  7. NEORAL [Concomitant]
     Route: 048
  8. CELECOXIB [Suspect]
     Route: 048
  9. PURSENNID /SCH/ [Concomitant]
  10. GRANISETRON [Concomitant]
  11. TALION [Concomitant]
  12. CYCLOPHOSPHAMIDE [Concomitant]

REACTIONS (1)
  - POLYNEUROPATHY [None]
